APPROVED DRUG PRODUCT: VELOSEF
Active Ingredient: CEPHRADINE
Strength: 500MG
Dosage Form/Route: CAPSULE;ORAL
Application: A061764 | Product #002
Applicant: APOTHECON INC DIV BRISTOL MYERS SQUIBB
Approved: Approved Prior to Jan 1, 1982 | RLD: No | RS: No | Type: DISCN